FAERS Safety Report 4742935-6 (Version None)
Quarter: 2005Q3

REPORT INFORMATION
  Report Type: 
  Country: None (occurrence: None)
  Receive Date: 20050804
  Receipt Date: 20050406
  Transmission Date: 20060218
  Serious: No
  Sender: FDA-Public Use
  Company Number: FACT0500396

PATIENT
  Age: 51 Year
  Sex: Female

DRUGS (1)
  1. FACTIVE [Suspect]
     Indication: RESPIRATORY TRACT INFECTION BACTERIAL
     Dosage: 320 MG, SINGLE, ORAL
     Route: 048
     Dates: start: 20050401, end: 20050401

REACTIONS (1)
  - RASH [None]
